FAERS Safety Report 13456437 (Version 1)
Quarter: 2017Q2

REPORT INFORMATION
  Report Type: Spontaneous
  Country: FR (occurrence: FR)
  Receive Date: 20170419
  Receipt Date: 20170419
  Transmission Date: 20170830
  Serious: Yes (Hospitalization)
  Sender: FDA-Public Use
  Company Number: FR-PFIZER INC-2017160081

PATIENT
  Age: 50 Year
  Sex: Female

DRUGS (9)
  1. IFOSFAMIDE EG [Suspect]
     Active Substance: IFOSFAMIDE
     Indication: SARCOMA
     Dosage: 4900 MG, CYCLIC
     Route: 041
     Dates: start: 20170331, end: 20170401
  2. CACIT VITAMIN D3 [Concomitant]
     Active Substance: CALCIUM CARBONATE\CHOLECALCIFEROL
     Indication: HYPOCALCAEMIA
     Dosage: 1 DF (1000 MG/880 IU), 1X/DAY
  3. EXACYL [Concomitant]
     Active Substance: TRANEXAMIC ACID
     Indication: HAEMORRHAGE
     Dosage: 1 DF, 3X/DAY
     Route: 048
  4. UROMITEXAN [Suspect]
     Active Substance: MESNA
     Indication: SARCOMA
     Dosage: 5900 MG, CYCLIC
     Route: 041
     Dates: start: 20170331, end: 20170401
  5. PALONOSETRON ACCORD [Suspect]
     Active Substance: PALONOSETRON HYDROCHLORIDE
     Indication: PROPHYLAXIS OF NAUSEA AND VOMITING
     Dosage: 250 UG, 1X/DAY
     Route: 042
     Dates: start: 20170331, end: 20170401
  6. DOLIPRANE [Concomitant]
     Active Substance: ACETAMINOPHEN
     Indication: PAIN
     Dosage: 500 MG, 4X/DAY
     Route: 048
  7. PLITICAN [Suspect]
     Active Substance: ALIZAPRIDE HYDROCHLORIDE
     Indication: PROPHYLAXIS OF NAUSEA AND VOMITING
     Dosage: 400 MG, DAILY
     Route: 042
     Dates: start: 20170331, end: 20170401
  8. ADRIBLASTINE [Suspect]
     Active Substance: DOXORUBICIN
     Indication: SARCOMA UTERUS
     Dosage: 98 MG, CYCLIC
     Route: 041
     Dates: start: 20170331, end: 20170331
  9. SOLU-MEDROL [Suspect]
     Active Substance: METHYLPREDNISOLONE SODIUM SUCCINATE
     Indication: ADJUVANT THERAPY
     Dosage: 120 MG, 1X/DAY
     Route: 040
     Dates: start: 20170331, end: 20170401

REACTIONS (1)
  - Toxic encephalopathy [Recovering/Resolving]

NARRATIVE: CASE EVENT DATE: 20170401
